FAERS Safety Report 6107024-7 (Version None)
Quarter: 2009Q1

REPORT INFORMATION
  Report Type: 
  Country: None (occurrence: None)
  Receive Date: 20090306
  Receipt Date: 20090306
  Transmission Date: 20090719
  Serious: Yes (Other)
  Sender: FDA-Public Use
  Company Number: None

PATIENT
  Age: 88 Year
  Sex: Female
  Weight: 68.0396 kg

DRUGS (1)
  1. SPIRIVA [Suspect]
     Dosage: 1 PUFF DAILY INHALER
     Route: 055

REACTIONS (1)
  - EYE HAEMORRHAGE [None]
